FAERS Safety Report 12888291 (Version 5)
Quarter: 2017Q2

REPORT INFORMATION
  Report Type: Report from Study
  Country: US (occurrence: US)
  Receive Date: 20161027
  Receipt Date: 20170505
  Transmission Date: 20170830
  Serious: Yes (Other)
  Sender: FDA-Public Use
  Company Number: US-009507513-1610USA008754

PATIENT
  Age: 43 Year
  Sex: Male

DRUGS (1)
  1. PEMBROLIZUMAB. [Suspect]
     Active Substance: PEMBROLIZUMAB
     Indication: MALIGNANT MELANOMA STAGE IV
     Dosage: INFUSION EVERY THREE WEEKS
     Route: 042
     Dates: start: 2015

REACTIONS (22)
  - Blood test abnormal [Unknown]
  - Paranoia [Not Recovered/Not Resolved]
  - Selective eating disorder [Unknown]
  - Muscle disorder [Unknown]
  - Affective disorder [Not Recovered/Not Resolved]
  - Mental disorder [Not Recovered/Not Resolved]
  - Neuropathy peripheral [Unknown]
  - Hyperacusis [Unknown]
  - Antidepressant therapy [Unknown]
  - Furuncle [Not Recovered/Not Resolved]
  - Constipation [Recovered/Resolved]
  - Fatigue [Unknown]
  - Abdominal discomfort [Not Recovered/Not Resolved]
  - Facial pain [Not Recovered/Not Resolved]
  - Disorientation [Unknown]
  - Adverse drug reaction [Unknown]
  - Amnesia [Unknown]
  - Pain [Recovering/Resolving]
  - Feeling abnormal [Unknown]
  - Anxiety [Not Recovered/Not Resolved]
  - Panic attack [Unknown]
  - Behaviour disorder due to a general medical condition [Not Recovered/Not Resolved]

NARRATIVE: CASE EVENT DATE: 20161025
